FAERS Safety Report 16041632 (Version 1)
Quarter: 2019Q1

REPORT INFORMATION
  Report Type: Spontaneous
  Country: US (occurrence: US)
  Receive Date: 20190306
  Receipt Date: 20190306
  Transmission Date: 20190418
  Serious: No
  Sender: FDA-Public Use
  Company Number: US-AKORN PHARMACEUTICALS-2018AKN01196

PATIENT
  Sex: Female
  Weight: 69.84 kg

DRUGS (7)
  1. MYORISAN [Suspect]
     Active Substance: ISOTRETINOIN
     Indication: ACNE
     Dosage: 40 MG, 2X/DAY
     Route: 048
     Dates: start: 201806, end: 20180804
  2. PREDNISONE. [Suspect]
     Active Substance: PREDNISONE
     Indication: ARTHROPOD BITE
     Dosage: 60 MG, ONCE
     Dates: start: 20180801, end: 20180801
  3. PREDNISONE. [Suspect]
     Active Substance: PREDNISONE
     Dosage: 10 MG, ONCE
     Dates: start: 20180804, end: 20180804
  4. PREDNISONE. [Suspect]
     Active Substance: PREDNISONE
     Dosage: 5 MG, ONCE
     Dates: start: 20180805, end: 20180805
  5. PREDNISONE. [Suspect]
     Active Substance: PREDNISONE
     Dosage: 40 MG, TWICE
     Dates: start: 20180802, end: 20180803
  6. MYORISAN [Suspect]
     Active Substance: ISOTRETINOIN
     Indication: ACNE
     Dosage: 30 MG, 2X/DAY
     Route: 048
     Dates: start: 201804, end: 201806
  7. VITAMIN D [Concomitant]
     Active Substance: CHOLECALCIFEROL

REACTIONS (5)
  - Acne [Not Recovered/Not Resolved]
  - Scar [Not Recovered/Not Resolved]
  - Blister [Not Recovered/Not Resolved]
  - Blood triglycerides increased [Recovered/Resolved]
  - Arthropod bite [Not Recovered/Not Resolved]

NARRATIVE: CASE EVENT DATE: 2018
